FAERS Safety Report 5329288-X (Version None)
Quarter: 2007Q2

REPORT INFORMATION
  Report Type: 
  Country: None (occurrence: None)
  Receive Date: 20070518
  Receipt Date: 20070508
  Transmission Date: 20071010
  Serious: Yes (Other)
  Sender: FDA-Public Use
  Company Number: US-MERCK-0705USA02638

PATIENT
  Age: 25 Year
  Sex: Male

DRUGS (3)
  1. VYTORIN [Suspect]
     Route: 065
  2. LAMICTAL [Concomitant]
     Route: 065
  3. PHENYTOIN [Concomitant]
     Route: 065

REACTIONS (1)
  - DRUG LEVEL DECREASED [None]
